FAERS Safety Report 6294772-1 (Version None)
Quarter: 2009Q3

REPORT INFORMATION
  Report Type: 
  Country: None (occurrence: None)
  Receive Date: 20090803
  Receipt Date: 20090728
  Transmission Date: 20100115
  Serious: Yes (Other)
  Sender: FDA-Public Use
  Company Number: US-JNJFOC-20090601138

PATIENT
  Sex: Male

DRUGS (7)
  1. TOPAMAX [Suspect]
     Indication: WEIGHT LOSS DIET
     Route: 048
  2. ADIPEX [Suspect]
     Indication: WEIGHT LOSS DIET
     Dosage: HALF TABLET EVERY MORNING
  3. INDOMETHACIN [Concomitant]
     Indication: PAIN
     Route: 048
  4. LORTAB [Concomitant]
     Indication: PAIN
     Dosage: EVERY 4-6 HOURS AS NEEDED.
     Route: 048
  5. TEMAZEPAM [Concomitant]
     Indication: SLEEP DISORDER THERAPY
     Dosage: ONE EVERY 4-6 HOURS AS NECESSARY
     Route: 048
  6. ATENOLOL [Concomitant]
     Indication: BLOOD PRESSURE
     Dosage: EVERY DAY
     Route: 048
  7. HYDROCODONE [Concomitant]

REACTIONS (4)
  - FEELING ABNORMAL [None]
  - INJURY [None]
  - LOSS OF CONSCIOUSNESS [None]
  - MEMORY IMPAIRMENT [None]
